FAERS Safety Report 6437303-5 (Version None)
Quarter: 2009Q4

REPORT INFORMATION
  Report Type: 
  Country: None (occurrence: None)
  Receive Date: 20091112
  Receipt Date: 20091105
  Transmission Date: 20100525
  Serious: Yes (Hospitalization)
  Sender: FDA-Public Use
  Company Number: CH-ROCHE-667024

PATIENT
  Age: 69 Year
  Sex: Male

DRUGS (13)
  1. TAMIFLU [Suspect]
     Indication: H1N1 INFLUENZA
     Route: 048
     Dates: start: 20090921, end: 20090926
  2. CIPROXIN [Suspect]
     Indication: INFECTIVE EXACERBATION OF CHRONIC OBSTRUCTIVE AIRWAYS DISEASE
     Route: 048
     Dates: start: 20090925, end: 20090926
  3. PREDNISONE [Suspect]
     Indication: INFECTIVE EXACERBATION OF CHRONIC OBSTRUCTIVE AIRWAYS DISEASE
     Route: 048
     Dates: start: 20090921, end: 20090926
  4. INSULATARD [Concomitant]
     Route: 059
  5. ZITHROMAX [Concomitant]
     Route: 048
  6. SINTROM [Concomitant]
     Indication: ATRIAL FLUTTER
     Route: 048
  7. ALDACTONE [Concomitant]
  8. TORSEMIDE [Concomitant]
  9. ALLOPUR [Concomitant]
  10. OMED [Concomitant]
  11. SERETIDE [Concomitant]
  12. SPIRIVA [Concomitant]
  13. NOVORAPID [Concomitant]

REACTIONS (4)
  - AGITATION [None]
  - CONFUSIONAL STATE [None]
  - SPEECH DISORDER [None]
  - TREMOR [None]
